FAERS Safety Report 6172790-1 (Version None)
Quarter: 2009Q2

REPORT INFORMATION
  Report Type: 
  Country: None (occurrence: None)
  Receive Date: 20090430
  Receipt Date: 20090428
  Transmission Date: 20091009
  Serious: Yes (Hospitalization)
  Sender: FDA-Public Use
  Company Number: CA-BRISTOL-MYERS SQUIBB COMPANY-14600266

PATIENT
  Age: 62 Year
  Sex: Female

DRUGS (5)
  1. ORENCIA [Suspect]
     Indication: RHEUMATOID ARTHRITIS
     Route: 042
  2. CELEBREX [Concomitant]
  3. PREDNISONE [Concomitant]
  4. ACTONEL [Concomitant]
  5. CARBACHOL [Concomitant]
     Dosage: WEEKLY

REACTIONS (2)
  - ERYTHEMA NODOSUM [None]
  - THROMBOCYTOPENIA [None]
